FAERS Safety Report 8561985 (Version 4)
Quarter: 2013Q1

REPORT INFORMATION
  Report Type: Spontaneous
  Country: MX (occurrence: MX)
  Receive Date: 20120515
  Receipt Date: 20130318
  Transmission Date: 20140127
  Serious: Yes (Hospitalization, Other)
  Sender: FDA-Public Use
  Company Number: PHHY2012MX040686

PATIENT
  Age: 71 Year
  Sex: Female

DRUGS (14)
  1. ACLASTA [Suspect]
     Indication: OSTEOPOROSIS
     Dosage: 5 MG/ 100 ML ONCE A YEAR
     Route: 042
     Dates: start: 20110506
  2. LOSARTAN [Concomitant]
     Indication: HYPERTENSION
     Dosage: 50 MG, BID
  3. LOSARTAN [Concomitant]
     Dosage: 1 DF, DAILY
     Dates: start: 20100520
  4. ASPIRIN PROTECT [Concomitant]
     Dosage: ONCE A DAY SINCE ONE YEAR AGO
  5. CELEBREX [Concomitant]
     Dosage: UNK UKN, PRN
  6. CALTRATE [Concomitant]
     Dosage: UNK UKN, UNK
  7. INSULIN GLARGINE [Concomitant]
     Dosage: 12 UNITS EVERY 24 HOURS
  8. CIPROFLOXACIN [Concomitant]
     Dosage: 250 MG, 6 EVERY 24 HOURS
     Dates: start: 20120604
  9. MOXIFLOXACIN [Concomitant]
     Dosage: UNK UKN, UNK
     Dates: start: 20120524
  10. PINAVERIUM BROMIDE [Concomitant]
     Indication: COLITIS
     Dosage: 2 EVERY 24 HOURS
     Dates: start: 20120524
  11. OMEPRAZOLE [Concomitant]
     Dosage: 1 EVERY 24 HOURS
     Dates: start: 20120524
  12. COMBIVENT [Concomitant]
     Dosage: UNK UKN, UNK
  13. METFORMIN [Concomitant]
     Indication: DIABETES MELLITUS
     Dosage: 0.5 DF, DAILY
     Dates: start: 201210
  14. TRADOL [Concomitant]
     Indication: PAIN
     Dosage: 15 DF, DAILY
     Dates: start: 201205

REACTIONS (12)
  - Abdominal pain [Recovered/Resolved]
  - Dehydration [Unknown]
  - Shock [Recovered/Resolved]
  - Atelectasis [Recovered/Resolved]
  - Road traffic accident [Recovered/Resolved]
  - Head injury [Recovered/Resolved]
  - Face injury [Recovered/Resolved]
  - Limb injury [Recovered/Resolved]
  - Abdominal pain upper [Recovered/Resolved]
  - Renal failure [Recovered/Resolved]
  - Skin fissures [Recovered/Resolved]
  - Diarrhoea [Unknown]
